FAERS Safety Report 8462328-8 (Version None)
Quarter: 2012Q2

REPORT INFORMATION
  Report Type: 
  Country: None (occurrence: None)
  Receive Date: 20120625
  Receipt Date: 20120615
  Transmission Date: 20120825
  Serious: Yes (Other)
  Sender: FDA-Public Use
  Company Number: US-PFIZER INC-2012145572

PATIENT
  Weight: 108.39 kg

DRUGS (13)
  1. SIMVASTATIN [Concomitant]
     Dosage: 80 MG, 1/2 BY MOUTH EVERYDAY
     Route: 048
  2. FUROSEMIDE [Concomitant]
     Dosage: 20 MG, AS NEEDED
     Route: 048
  3. PHENTERMINE HYDROCHLORIDE [Concomitant]
     Dosage: 37.5 MG, 1X/DAY
     Route: 048
  4. LYRICA [Suspect]
     Dosage: 75 MG, 2X/DAY
     Route: 048
  5. HUMALOG [Concomitant]
     Dosage: 100 UNITS/ML, 30 UNITS WITH MEAL OR PER HUMALOG SLIDING SCALE
  6. PRILOSEC [Concomitant]
     Dosage: 40 MG, 1X/DAY
     Route: 048
  7. HYDROCHLOROTHIAZIDE [Concomitant]
     Indication: SWELLING
     Dosage: 25 MG EVERYDAY AS NEEDED
     Route: 048
  8. ZOFRAN [Concomitant]
     Indication: NAUSEA
     Dosage: 4 MG, 1 BY MOUTH EVERY 6 HOURS AS NEEDED
     Route: 048
  9. HYDROCODONE BITARTRATE + ACETAMINOPHEN [Concomitant]
     Dosage: 10-325 MG, 1 FOUR TIMES A DAY AS NEEDED
     Route: 048
  10. JANUVIA [Concomitant]
     Dosage: 100 MG, 1X/DAY
     Route: 048
  11. DEPO-SUBQ PROVERA 104 [Suspect]
     Dosage: 150 MG/ML, 1 SQ EVERY 3 MONTHS (REFILLED)
     Route: 058
  12. IBUPROFEN [Concomitant]
     Dosage: 800 MG, 1 BY MOUTH THREE TIMES A DAY PRN, TAKE WITH FOOD
     Route: 048
  13. LANTUS [Concomitant]
     Dosage: 100 UNIT/ML, 48 UNITS TWICE A DAY

REACTIONS (5)
  - ARTHRALGIA [None]
  - SPINAL COLUMN STENOSIS [None]
  - NEUROPATHY PERIPHERAL [None]
  - OEDEMA [None]
  - PAIN [None]
